FAERS Safety Report 8011052-4 (Version None)
Quarter: 2011Q4

REPORT INFORMATION
  Report Type: 
  Country: None (occurrence: None)
  Receive Date: 20111222
  Receipt Date: 20111214
  Transmission Date: 20120403
  Serious: Yes (Hospitalization)
  Sender: FDA-Public Use
  Company Number: TPA2011A08564

PATIENT
  Age: 51 Year
  Sex: Male

DRUGS (3)
  1. NOVALGIN (METAMIZOLE SODIUM) [Concomitant]
  2. ADENURIC (FEBUXOSTAT) [Suspect]
     Indication: HYPERURICAEMIA
     Dosage: 80 MG (80 MG) ORAL
     Route: 048
     Dates: start: 20111128, end: 20111201
  3. PREDNISOLONE [Concomitant]

REACTIONS (1)
  - BILIARY COLIC [None]
